FAERS Safety Report 14676159 (Version 4)
Quarter: 2018Q3

REPORT INFORMATION
  Report Type: Spontaneous
  Country: DE (occurrence: DE)
  Receive Date: 20180323
  Receipt Date: 20180803
  Transmission Date: 20181010
  Serious: Yes (Other)
  Sender: FDA-Public Use
  Company Number: PHHY2018DE036531

PATIENT
  Sex: Female
  Weight: 1.49 kg

DRUGS (5)
  1. XIPAMIDE [Concomitant]
     Active Substance: XIPAMIDE
     Indication: FOETAL EXPOSURE DURING PREGNANCY
     Dosage: MATERNAL DOSE UNKNOWN
     Route: 064
  2. SODIUM HYDROGEN CARBONATE [Concomitant]
     Active Substance: SODIUM BICARBONATE
     Indication: FOETAL EXPOSURE DURING PREGNANCY
     Dosage: MATERNAL DOSE UNKNOWN
     Route: 064
  3. BISOPROLOL [Suspect]
     Active Substance: BISOPROLOL
     Indication: FOETAL EXPOSURE DURING PREGNANCY
     Dosage: MATERNAL DOSE UNKNOWN
     Route: 064
  4. CANDESARTAN CILEXETIL. [Suspect]
     Active Substance: CANDESARTAN CILEXETIL
     Indication: FOETAL EXPOSURE DURING PREGNANCY
     Dosage: MATERNAL DOSE UNKNOWN
     Route: 064
  5. COLESTILAN [Concomitant]
     Active Substance: COLESTILAN CHLORIDE
     Indication: FOETAL EXPOSURE DURING PREGNANCY
     Dosage: MATERNAL DOSE UNKNOWN
     Route: 064

REACTIONS (7)
  - Renal failure neonatal [Recovered/Resolved]
  - Acute kidney injury [Unknown]
  - Low birth weight baby [Recovering/Resolving]
  - Hypotension [Unknown]
  - Premature baby [Recovered/Resolved]
  - Neonatal hypotension [Recovered/Resolved]
  - Foetal exposure during pregnancy [Recovered/Resolved]
